FAERS Safety Report 7787036-8 (Version None)
Quarter: 2011Q3

REPORT INFORMATION
  Report Type: 
  Country: None (occurrence: None)
  Receive Date: 20110929
  Receipt Date: 20110919
  Transmission Date: 20111222
  Serious: Yes (Hospitalization)
  Sender: FDA-Public Use
  Company Number: US-BAYER-2011-055430

PATIENT
  Age: 48 Year
  Sex: Female
  Weight: 61.224 kg

DRUGS (19)
  1. SINGULAIR [Concomitant]
     Dosage: 10 MG, UNK
     Route: 048
  2. OPTIVAR [Concomitant]
     Dosage: 0.05 %, UNK
     Dates: start: 20080807
  3. FLUCONAZOLE [Concomitant]
     Dosage: 150 MG, UNK
     Route: 048
     Dates: start: 20080703
  4. LEXAPRO [Concomitant]
     Dosage: 20 MG, UNK
     Route: 048
  5. PRILOSEC [Concomitant]
  6. METHYLPREDNISOLONE [Concomitant]
     Dosage: 4 MG, UNK
     Route: 048
  7. MUPIROCIN [Concomitant]
     Dosage: 2 %, UNK
     Route: 061
  8. MACROBID [Concomitant]
     Dosage: UNK
     Dates: start: 20030701
  9. PREDNISONE [Concomitant]
     Dosage: 20 MG, UNK
     Route: 048
     Dates: start: 20080627
  10. PHISOHEX [Concomitant]
     Dosage: UNK
     Route: 061
     Dates: start: 20080708
  11. YASMIN [Suspect]
     Indication: CONTRACEPTION
     Dosage: UNK
     Dates: start: 20000101, end: 20080101
  12. CEFUROXIME [Concomitant]
     Indication: SINUSITIS
     Dosage: 250 MG, UNK
     Route: 048
     Dates: start: 20080522
  13. PATADAY [Concomitant]
     Dosage: 0.2 %, UNK
     Dates: start: 20080729
  14. YAZ [Suspect]
     Indication: CONTRACEPTION
     Dosage: UNK
     Dates: start: 20000101, end: 20080101
  15. ALBUTEROL [Concomitant]
     Dosage: 17 G, UNK
     Route: 055
  16. FLUOROMETHOLONE [Concomitant]
     Dosage: 0.1 %, UNK
     Dates: start: 20080512
  17. PROPOXYPHENE HCL AND ACETAMINOPHEN [Concomitant]
     Dosage: UNK
     Route: 048
     Dates: start: 20080703
  18. ADVAIR DISKUS 100/50 [Concomitant]
     Route: 055
  19. DIFLUCAN [Concomitant]
     Dosage: UNK
     Dates: start: 20030701

REACTIONS (4)
  - CEREBROVASCULAR ACCIDENT [None]
  - PAIN [None]
  - INJURY [None]
  - TRANSIENT ISCHAEMIC ATTACK [None]
